FAERS Safety Report 18152085 (Version 1)
Quarter: 2020Q3

REPORT INFORMATION
  Report Type: Other
  Country: US (occurrence: US)
  Receive Date: 20200814
  Receipt Date: 20200814
  Transmission Date: 20201103
  Serious: Yes (Other)
  Sender: FDA-Public Use
  Company Number: US-NOVA LABORATORIES LIMITED-2088629

PATIENT
  Age: 9 Year
  Sex: Female

DRUGS (7)
  1. DESMOPRESSIN [Concomitant]
     Active Substance: DESMOPRESSIN
  2. METHOTREXATE. [Suspect]
     Active Substance: METHOTREXATE
     Route: 065
  3. VINBLASTINE [Concomitant]
     Active Substance: VINBLASTINE
  4. PURIXAN [Suspect]
     Active Substance: MERCAPTOPURINE
     Indication: XANTHOGRANULOMA
     Route: 065
  5. MERCAPTOPURINE. [Suspect]
     Active Substance: MERCAPTOPURINE
  6. PREDNISOLONE. [Concomitant]
     Active Substance: PREDNISOLONE
  7. MERCAPTOPURINE. [Suspect]
     Active Substance: MERCAPTOPURINE

REACTIONS (2)
  - Gastrointestinal disorder [Unknown]
  - Off label use [None]
